FAERS Safety Report 12885192 (Version 1)
Quarter: 2016Q4

REPORT INFORMATION
  Report Type: Report from Study
  Country: US (occurrence: US)
  Receive Date: 20161026
  Receipt Date: 20161026
  Transmission Date: 20170207
  Serious: Yes (Hospitalization, Other)
  Sender: FDA-Public Use
  Company Number: US-ALEXION PHARMACEUTICALS INC-A201608059

PATIENT
  Age: 35 Year
  Sex: Female

DRUGS (1)
  1. SOLIRIS [Suspect]
     Active Substance: ECULIZUMAB
     Indication: HAEMOLYTIC URAEMIC SYNDROME
     Dosage: 1200 MG, Q2W
     Route: 042

REACTIONS (4)
  - Pulmonary necrosis [Not Recovered/Not Resolved]
  - Hepatitis C [Not Recovered/Not Resolved]
  - Sepsis [Not Recovered/Not Resolved]
  - Pulmonary mycosis [Not Recovered/Not Resolved]

NARRATIVE: CASE EVENT DATE: 20161020
